FAERS Safety Report 11105726 (Version 1)
Quarter: 2015Q2

REPORT INFORMATION
  Report Type: Spontaneous
  Country: US (occurrence: None)
  Receive Date: 20150508
  Receipt Date: 20150508
  Transmission Date: 20150821
  Serious: No
  Sender: FDA-Public Use
  Company Number: None

PATIENT
  Age: 62 Year
  Sex: Male
  Weight: 90.72 kg

DRUGS (6)
  1. THORAZINE [Suspect]
     Active Substance: CHLORPROMAZINE
     Indication: SCHIZOPHRENIA
     Dosage: 2 TEASPOON
     Route: 048
     Dates: start: 1977
  2. DEPAKOTE [Suspect]
     Active Substance: DIVALPROEX SODIUM
     Dosage: 1000 MG 2 TEASPOON
  3. HALDOL [Suspect]
     Active Substance: HALOPERIDOL
     Dosage: 1000 MG 2 TEASPOON
  4. PROLIXIN [Suspect]
     Active Substance: FLUPHENAZINE HYDROCHLORIDE
  5. PAXIL [Suspect]
     Active Substance: PAROXETINE HYDROCHLORIDE
     Dosage: 1000 MG 2 TEASPOON
  6. SEROQUEL [Suspect]
     Active Substance: QUETIAPINE FUMARATE
     Dosage: 1000 MG 2 TEASPOON

REACTIONS (11)
  - Hypertension [None]
  - Muscle spasms [None]
  - Pyrexia [None]
  - Exophthalmos [None]
  - Trismus [None]
  - Dizziness [None]
  - Overdose [None]
  - Constipation [None]
  - Erectile dysfunction [None]
  - Loss of consciousness [None]
  - Hyperhidrosis [None]

NARRATIVE: CASE EVENT DATE: 20150424
